FAERS Safety Report 7609017-7 (Version None)
Quarter: 2011Q3

REPORT INFORMATION
  Report Type: 
  Country: None (occurrence: None)
  Receive Date: 20110714
  Receipt Date: 20110714
  Transmission Date: 20111222
  Serious: Yes (Hospitalization)
  Sender: FDA-Public Use
  Company Number: AR-ROCHE-632839

PATIENT
  Sex: Female
  Weight: 69 kg

DRUGS (4)
  1. MYCOPHENOLATE MOFETIL [Suspect]
     Indication: LUPUS NEPHRITIS
     Route: 065
     Dates: start: 20081101, end: 20090511
  2. MYCOPHENOLATE MOFETIL [Suspect]
     Dosage: DAILY DOSE: 1.585
     Route: 065
     Dates: start: 20090514
  3. PREDNISONE [Suspect]
     Indication: LUPUS NEPHRITIS
     Route: 065
     Dates: start: 20090422
  4. OCRELIZUMAB [Suspect]
     Indication: LUPUS NEPHRITIS
     Dosage: FREQUENCY: DAY 1 AND DAY 15 FORM: INFUSION DATE OF LAST DOSE PRIOR TO EVENT:26 JAN 2009
     Route: 042
     Dates: start: 20081006

REACTIONS (1)
  - EAR INFECTION [None]
